FAERS Safety Report 25175259 (Version 2)
Quarter: 2025Q3

REPORT INFORMATION
  Report Type: Report from Study
  Country: US (occurrence: US)
  Receive Date: 20250408
  Receipt Date: 20250709
  Transmission Date: 20251021
  Serious: No
  Sender: TG THERAPEUTICS
  Company Number: US-TG THERAPEUTICS INC.-TGT004454

PATIENT

DRUGS (2)
  1. UBLITUXIMAB [Suspect]
     Active Substance: UBLITUXIMAB
     Indication: Multiple sclerosis
     Route: 042
     Dates: start: 20230705, end: 20230705
  2. UBLITUXIMAB [Suspect]
     Active Substance: UBLITUXIMAB
     Route: 042
     Dates: start: 20250108, end: 20250108

REACTIONS (5)
  - Muscular weakness [Unknown]
  - Fall [Unknown]
  - Pain [Recovered/Resolved]
  - Clumsiness [Unknown]
  - Gait disturbance [Unknown]

NARRATIVE: CASE EVENT DATE: 20241201
